FAERS Safety Report 7920409-9 (Version None)
Quarter: 2011Q4

REPORT INFORMATION
  Report Type: 
  Country: None (occurrence: None)
  Receive Date: 20111117
  Receipt Date: 20111103
  Transmission Date: 20120403
  Serious: Yes (Other)
  Sender: FDA-Public Use
  Company Number: PHHY2011US098361

PATIENT
  Age: 64 Year
  Sex: Female

DRUGS (5)
  1. METHYLPREDNISOLONE [Concomitant]
  2. CYCLOSPORINE [Suspect]
  3. STEROIDS NOS [Concomitant]
     Dosage: UNK UKN, UNK
  4. NEUPOGEN [Suspect]
     Dosage: 600 UG, QD
  5. NEUPOGEN [Suspect]

REACTIONS (4)
  - RENAL IMPAIRMENT [None]
  - BLOOD CREATININE INCREASED [None]
  - ARTHRITIS [None]
  - WOUND [None]
